FAERS Safety Report 4941169-X (Version None)
Quarter: 2006Q1

REPORT INFORMATION
  Report Type: 
  Country: None (occurrence: None)
  Receive Date: 20060308
  Receipt Date: 20060302
  Transmission Date: 20060701
  Serious: Yes (Other)
  Sender: FDA-Public Use
  Company Number: NLWYE328024JAN06

PATIENT
  Age: 55 Year
  Sex: Female

DRUGS (3)
  1. EFFEXOR XR [Suspect]
     Indication: DEATH OF PARENT
     Dosage: 75 MG 1X PER 1 DAY ORAL
     Route: 048
     Dates: start: 20041001
  2. EFFEXOR XR [Suspect]
     Indication: DEPRESSION
     Dosage: 75 MG 1X PER 1 DAY ORAL
     Route: 048
     Dates: start: 20041001
  3. OXAZEPAM [Concomitant]

REACTIONS (2)
  - ANAEMIA [None]
  - GASTROINTESTINAL NEOPLASM [None]
